APPROVED DRUG PRODUCT: HYDRALAZINE HYDROCHLORIDE
Active Ingredient: HYDRALAZINE HYDROCHLORIDE
Strength: 20MG/ML
Dosage Form/Route: INJECTABLE;INJECTION
Application: A089532 | Product #001
Applicant: ABRAXIS PHARMACEUTICAL PRODUCTS
Approved: Aug 11, 1987 | RLD: No | RS: No | Type: DISCN